FAERS Safety Report 5427395-4 (Version None)
Quarter: 2007Q3

REPORT INFORMATION
  Report Type: 
  Country: None (occurrence: None)
  Receive Date: 20070828
  Receipt Date: 20070827
  Transmission Date: 20080115
  Serious: Yes (Hospitalization)
  Sender: FDA-Public Use
  Company Number: US-BRISTOL-MYERS SQUIBB COMPANY-13889332

PATIENT
  Age: 71 Year
  Sex: Female
  Weight: 70 kg

DRUGS (4)
  1. AVAPRO FILM-COATED/RM TABS 150 MG [Suspect]
     Indication: BLOOD PRESSURE INCREASED
     Dosage: STARTED AT DOSE OF 75 MG DAILY FROM 20-MAR-2007.
     Route: 048
  2. LOPRESSOR [Concomitant]
  3. COUMADIN [Concomitant]
  4. NYSTATIN MOUTHWASH [Concomitant]
     Indication: ORAL FUNGAL INFECTION

REACTIONS (4)
  - BLOOD SODIUM DECREASED [None]
  - BRONCHOPNEUMONIA [None]
  - MUSCLE ATROPHY [None]
  - WEIGHT DECREASED [None]
